FAERS Safety Report 17876394 (Version 1)
Quarter: 2020Q2

REPORT INFORMATION
  Report Type: Spontaneous
  Country: US (occurrence: US)
  Receive Date: 20200609
  Receipt Date: 20200609
  Transmission Date: 20200714
  Serious: Yes (Hospitalization, Other)
  Sender: FDA-Public Use
  Company Number: US-VISTAPHARM, INC.-VER202006-001098

PATIENT
  Age: 55 Year
  Sex: Male

DRUGS (1)
  1. OXYCODONE [Suspect]
     Active Substance: OXYCODONE
     Indication: BACK PAIN
     Dosage: INGESTED 24 TABLETS OF OXYCODONE 30 MG OVER THAT 48-HOUR PERIOD

REACTIONS (6)
  - Hypotension [Recovering/Resolving]
  - Accidental overdose [Unknown]
  - Acute respiratory failure [Recovering/Resolving]
  - Myelitis transverse [Recovering/Resolving]
  - Shock [Recovering/Resolving]
  - Multiple organ dysfunction syndrome [Recovering/Resolving]
